FAERS Safety Report 4524328-X (Version None)
Quarter: 2004Q4

REPORT INFORMATION
  Report Type: 
  Country: None (occurrence: None)
  Receive Date: 20041119
  Receipt Date: 20041026
  Transmission Date: 20050328
  Serious: No
  Sender: FDA-Public Use
  Company Number: 209951

PATIENT
  Age: 27 Year
  Sex: Male

DRUGS (1)
  1. RAPTIVA [Suspect]
     Indication: PSORIASIS

REACTIONS (1)
  - PSORIASIS [None]
